FAERS Safety Report 9052250 (Version 1)
Quarter: 2013Q1

REPORT INFORMATION
  Report Type: Spontaneous
  Country: US (occurrence: US)
  Receive Date: 20130206
  Receipt Date: 20130206
  Transmission Date: 20140127
  Serious: Yes (Hospitalization)
  Sender: FDA-Public Use
  Company Number: US-BAYER-2013-014706

PATIENT
  Age: 43 Year
  Sex: Female
  Weight: 85.71 kg

DRUGS (6)
  1. YASMIN [Suspect]
     Indication: DYSMENORRHOEA
  2. DECONAMINE [CHLORPHENAMINE MALEATE,PSEUDOEPHEDRINE HYDROCHLORIDE] [Concomitant]
     Dosage: UNK
     Route: 048
     Dates: start: 20051109
  3. AMOXICILLIN [Concomitant]
     Dosage: 500 MG, UNK
     Route: 048
     Dates: start: 20051109
  4. OXYMETAZOLINE [Concomitant]
     Dosage: UNK
     Route: 045
     Dates: start: 20051212
  5. AUGMENTIN [Concomitant]
     Dosage: UNK
     Route: 048
     Dates: start: 20051212
  6. BENZONATATE [Concomitant]
     Dosage: UNK
     Route: 048
     Dates: start: 20051215

REACTIONS (2)
  - Pulmonary embolism [None]
  - Deep vein thrombosis [None]
